FAERS Safety Report 16387154 (Version 2)
Quarter: 2019Q3

REPORT INFORMATION
  Report Type: Spontaneous
  Country: FR (occurrence: FR)
  Receive Date: 20190604
  Receipt Date: 20190904
  Transmission Date: 20191004
  Serious: Yes (Hospitalization)
  Sender: FDA-Public Use
  Company Number: FR-AUROBINDO-AUR-APL-2019-031003

PATIENT

DRUGS (9)
  1. TANAKAN [Concomitant]
     Active Substance: GINKGO
     Indication: PRODUCT USED FOR UNKNOWN INDICATION
     Dosage: UNK
     Route: 065
  2. CIPROFLOXACIN. [Suspect]
     Active Substance: CIPROFLOXACIN
     Indication: DENTAL CARE
     Dosage: UNK
     Route: 048
     Dates: start: 20190429, end: 20190503
  3. CEFTRIAXONE. [Concomitant]
     Active Substance: CEFTRIAXONE
     Indication: PRODUCT USED FOR UNKNOWN INDICATION
     Dosage: UNK
     Route: 065
  4. RENITEC [ENALAPRIL MALEATE] [Suspect]
     Active Substance: ENALAPRIL MALEATE
     Indication: HYPERTENSION
     Dosage: 20 MILLIGRAM, DAILY
     Route: 048
     Dates: end: 20190505
  5. GLUCOR [Concomitant]
     Active Substance: ACARBOSE
     Indication: PRODUCT USED FOR UNKNOWN INDICATION
     Dosage: UNK
     Route: 065
  6. JANUVIA [Concomitant]
     Active Substance: SITAGLIPTIN PHOSPHATE
     Indication: PRODUCT USED FOR UNKNOWN INDICATION
     Dosage: UNK
     Route: 065
  7. LERCAN [Concomitant]
     Active Substance: LERCANIDIPINE
     Indication: PRODUCT USED FOR UNKNOWN INDICATION
     Dosage: UNK
     Route: 016
  8. DIAMICRON [Concomitant]
     Active Substance: GLICLAZIDE
     Indication: TYPE 2 DIABETES MELLITUS
     Dosage: UNK
     Route: 065
     Dates: end: 20190509
  9. METEOSPASMYL (ALVERINE CITRATE\DIMETHICONE) [Concomitant]
     Active Substance: ALVERINE CITRATE\DIMETHICONE
     Indication: PRODUCT USED FOR UNKNOWN INDICATION
     Dosage: UNK
     Route: 065

REACTIONS (1)
  - Hyponatraemia [Recovered/Resolved]

NARRATIVE: CASE EVENT DATE: 20190505
